FAERS Safety Report 8471306-4 (Version None)
Quarter: 2012Q2

REPORT INFORMATION
  Report Type: 
  Country: None (occurrence: None)
  Receive Date: 20120621
  Receipt Date: 20120607
  Transmission Date: 20120825
  Serious: Yes (Hospitalization)
  Sender: FDA-Public Use
  Company Number: 20120369

PATIENT
  Age: 27 Year
  Sex: Female

DRUGS (1)
  1. PROGESTERONE INJ [Suspect]
     Dosage: DAILY, INTRAMUSCULAR
     Route: 030

REACTIONS (2)
  - PLEURAL EFFUSION [None]
  - EOSINOPHILIC PNEUMONIA ACUTE [None]
